FAERS Safety Report 17931415 (Version 3)
Quarter: 2020Q3

REPORT INFORMATION
  Report Type: Report from Study
  Country: US (occurrence: US)
  Receive Date: 20200624
  Receipt Date: 20200917
  Transmission Date: 20201103
  Serious: No
  Sender: FDA-Public Use
  Company Number: NVSC2018US005973

PATIENT
  Sex: Female

DRUGS (1)
  1. LATANOPROST. [Suspect]
     Active Substance: LATANOPROST
     Indication: PRODUCT USED FOR UNKNOWN INDICATION
     Route: 065

REACTIONS (4)
  - Ocular hyperaemia [Unknown]
  - Eye swelling [Unknown]
  - Hypersensitivity [Unknown]
  - Eye irritation [Unknown]
